FAERS Safety Report 8530482-5 (Version None)
Quarter: 2012Q3

REPORT INFORMATION
  Report Type: 
  Country: None (occurrence: None)
  Receive Date: 20120723
  Receipt Date: 20120627
  Transmission Date: 20120928
  Serious: No
  Sender: FDA-Public Use
  Company Number: US-ROXANE LABORATORIES, INC.-2012-RO-01496RO

PATIENT
  Sex: Female

DRUGS (3)
  1. SYNTHROID [Concomitant]
     Indication: THYROID DISORDER
  2. AZATHIOPRINE [Suspect]
     Indication: AUTOIMMUNE HEPATITIS
     Dosage: 50 MG
     Route: 048
     Dates: start: 20120202
  3. AZATHIOPRINE [Suspect]
     Dosage: 25 MG
     Route: 048

REACTIONS (1)
  - ALOPECIA [None]
